FAERS Safety Report 18749134 (Version 2)
Quarter: 2021Q1

REPORT INFORMATION
  Report Type: Report from Study
  Country: US (occurrence: US)
  Receive Date: 20210116
  Receipt Date: 20210306
  Transmission Date: 20210419
  Serious: No
  Sender: FDA-Public Use
  Company Number: NVSC2021US007799

PATIENT
  Sex: Female

DRUGS (1)
  1. MAYZENT [Suspect]
     Active Substance: SIPONIMOD
     Indication: MULTIPLE SCLEROSIS
     Dosage: 2 MG, QD
     Route: 048

REACTIONS (1)
  - SARS-CoV-2 test negative [Unknown]
